FAERS Safety Report 24437016 (Version 1)
Quarter: 2024Q4

REPORT INFORMATION
  Report Type: Spontaneous
  Country: US (occurrence: None)
  Receive Date: 20241011
  Receipt Date: 20241011
  Transmission Date: 20250115
  Serious: No
  Sender: Public
  Company Number: None

PATIENT
  Age: 80 Year
  Sex: Male
  Weight: 65.6 kg

DRUGS (1)
  1. CAPECITABINE [Suspect]
     Active Substance: CAPECITABINE
     Indication: Pancreatic carcinoma
     Dosage: FREQUENCY : TWICE A DAY;?
     Route: 002

REACTIONS (5)
  - Nerve injury [None]
  - Hypoaesthesia [None]
  - Paraesthesia [None]
  - Burning sensation [None]
  - Pain [None]

NARRATIVE: CASE EVENT DATE: 20241011
